FAERS Safety Report 8891388 (Version 1)
Quarter: 2012Q4

REPORT INFORMATION
  Report Type: Spontaneous
  Country: US (occurrence: None)
  Receive Date: 20121105
  Receipt Date: 20121105
  Transmission Date: 20130627
  Serious: Yes (Other)
  Sender: FDA-Public Use
  Company Number: None

PATIENT
  Age: 41 Year
  Sex: Male
  Weight: 116.4 kg

DRUGS (2)
  1. OXCARBAZEPINE [Suspect]
     Indication: SEIZURE
     Route: 048
     Dates: start: 20121012, end: 20121030
  2. LEVETIRACETAM [Suspect]
     Route: 048
     Dates: start: 20120828, end: 20121030

REACTIONS (3)
  - Rash [None]
  - Rash [None]
  - Erythema multiforme [None]
